FAERS Safety Report 6310286-4 (Version None)
Quarter: 2009Q3

REPORT INFORMATION
  Report Type: 
  Country: None (occurrence: None)
  Receive Date: 20090814
  Receipt Date: 20090804
  Transmission Date: 20100115
  Serious: Yes (Hospitalization, Other)
  Sender: FDA-Public Use
  Company Number: PHHY2009MX33834

PATIENT

DRUGS (3)
  1. TRILEPTAL [Suspect]
     Dosage: MATERNAL DOSE:1200MG/DAY
     Route: 064
  2. TRILEPTAL [Suspect]
     Dosage: MATERNAL DOSE:600 MG PER DAY
     Route: 064
  3. TRILEPTAL [Suspect]
     Dosage: MATERNAL DOSE: 900 MG PER DAY
     Route: 064

REACTIONS (3)
  - DRUG EXPOSURE DURING PREGNANCY [None]
  - PNEUMONIA [None]
  - UNDERWEIGHT [None]
